FAERS Safety Report 5530514-2 (Version None)
Quarter: 2007Q4

REPORT INFORMATION
  Report Type: 
  Country: None (occurrence: None)
  Receive Date: 20071130
  Receipt Date: 20071121
  Transmission Date: 20080405
  Serious: Yes (Hospitalization, Other)
  Sender: FDA-Public Use
  Company Number: US-AVENTIS-200715742US

PATIENT
  Sex: Female

DRUGS (32)
  1. ALLEGRA-D 12 HOUR [Suspect]
     Dosage: DOSE: UNK
     Route: 048
     Dates: start: 20030101, end: 20070301
  2. CARDIA [Concomitant]
     Indication: ATRIAL FIBRILLATION
     Dosage: DOSE: UNK
     Dates: start: 20051201
  3. DIGOXIN [Concomitant]
     Dates: start: 20060501
  4. SOTALOL HYDROCHLORIDE [Concomitant]
     Dates: start: 20060501
  5. WARFARIN SODIUM [Concomitant]
     Indication: ATRIAL FIBRILLATION
     Dates: start: 20051201
  6. WARFARIN SODIUM [Concomitant]
  7. VYTORIN [Concomitant]
     Dosage: DOSE: 10/20
  8. SYNTHROID [Concomitant]
     Indication: HYPOTHYROIDISM
     Dates: start: 19750101
  9. FUROSEMIDE [Concomitant]
     Dates: start: 20020101
  10. POTASSIUM CHLORIDE [Concomitant]
     Dates: start: 20020101, end: 20071001
  11. SPIRIVA [Concomitant]
     Dosage: DOSE: UNK
  12. FISH OIL [Concomitant]
  13. QVAR 40 [Concomitant]
     Dosage: DOSE: UNK
  14. EVISTA [Concomitant]
     Dosage: DOSE: UNK
  15. ZOCOR [Concomitant]
     Dosage: DOSE: UNK
  16. INDAPAMIDE [Concomitant]
     Dosage: DOSE: UNK
  17. ADVAIR DISKUS 100/50 [Concomitant]
     Dosage: DOSE: UNK
  18. XOPENEX [Concomitant]
     Dosage: DOSE: UNK
  19. PREDNISONE TAB [Concomitant]
     Dosage: DOSE: UNK
  20. LIPITOR [Concomitant]
     Dosage: DOSE: UNK
  21. VITAMINS [Concomitant]
     Dosage: DOSE: UNK
  22. CARTIA XT                          /00489701/ [Concomitant]
  23. B COMPLEX                          /00212701/ [Concomitant]
     Dosage: DOSE: UNK
  24. ASCORBIC ACID [Concomitant]
     Dosage: DOSE: UNK
  25. CALCIUM WITH VITAMIN D             /01233101/ [Concomitant]
     Dosage: DOSE: UNK
  26. COENZYME Q10 [Concomitant]
     Dosage: DOSE: UNK
  27. ALBUTEROL [Concomitant]
     Dosage: DOSE: UNK
  28. AMBIEN [Concomitant]
     Dosage: DOSE: UNK
  29. NAPROSYN [Concomitant]
     Dosage: DOSE: UNK
  30. VOLTAREN [Concomitant]
     Dosage: DOSE: UNK
  31. MEDROL [Concomitant]
     Dosage: DOSE: UNK
  32. VIOXX [Concomitant]
     Dosage: DOSE: UNK

REACTIONS (12)
  - ABDOMINAL PAIN [None]
  - CONVULSION [None]
  - CYSTITIS INTERSTITIAL [None]
  - HYPOAESTHESIA [None]
  - MALAISE [None]
  - MASS [None]
  - MEDICATION RESIDUE [None]
  - MYOCARDIAL INFARCTION [None]
  - PARAESTHESIA [None]
  - RENAL CYST [None]
  - URINARY INCONTINENCE [None]
  - VOMITING [None]
